FAERS Safety Report 7050002-4 (Version None)
Quarter: 2010Q4

REPORT INFORMATION
  Report Type: 
  Country: None (occurrence: None)
  Receive Date: 20101018
  Receipt Date: 20101008
  Transmission Date: 20110411
  Serious: Yes (Life-Threatening, Other)
  Sender: FDA-Public Use
  Company Number: JP-ROCHE-704910

PATIENT
  Sex: Male
  Weight: 63 kg

DRUGS (10)
  1. TOCILIZUMAB [Suspect]
     Indication: RHEUMATOID ARTHRITIS
     Route: 041
     Dates: start: 20090601, end: 20090901
  2. TOCILIZUMAB [Suspect]
     Route: 041
     Dates: start: 20091027, end: 20091027
  3. TOCILIZUMAB [Suspect]
     Route: 041
     Dates: start: 20091124, end: 20091124
  4. TOCILIZUMAB [Suspect]
     Route: 041
     Dates: start: 20091222, end: 20091222
  5. TOCILIZUMAB [Suspect]
     Route: 041
     Dates: start: 20100119, end: 20100119
  6. TOCILIZUMAB [Suspect]
     Route: 041
     Dates: start: 20100216, end: 20100216
  7. METOLATE [Suspect]
     Indication: RHEUMATOID ARTHRITIS
     Route: 048
     Dates: start: 20091222, end: 20100316
  8. PREDNISOLONE [Suspect]
     Indication: RHEUMATOID ARTHRITIS
     Dosage: FORM: PERORAL AGENT.
     Route: 048
     Dates: start: 20100118
  9. PREDNISOLONE [Suspect]
     Route: 048
     Dates: start: 20100119, end: 20100316
  10. NEUROTROPIN [Concomitant]
     Dosage: (AN EXTRACT OBTAINED FROM INFLAMMATORY RABBIT SKIN INOCULA)
     Route: 048

REACTIONS (4)
  - CARDIAC ARREST [None]
  - PANCYTOPENIA [None]
  - PNEUMONIA [None]
  - RENAL FAILURE [None]
